FAERS Safety Report 8306504-3 (Version None)
Quarter: 2012Q2

REPORT INFORMATION
  Report Type: 
  Country: None (occurrence: None)
  Receive Date: 20120424
  Receipt Date: 20120413
  Transmission Date: 20120825
  Serious: No
  Sender: FDA-Public Use
  Company Number: US-BIOGENIDEC-2012BI011539

PATIENT
  Age: 56 Year
  Sex: Female

DRUGS (2)
  1. AVONEX [Suspect]
     Indication: MULTIPLE SCLEROSIS
     Route: 030
     Dates: start: 19980401
  2. AVONEX [Suspect]
     Route: 030

REACTIONS (3)
  - UNDERDOSE [None]
  - INFLUENZA [None]
  - MULTIPLE SCLEROSIS RELAPSE [None]
